FAERS Safety Report 19483860 (Version 1)
Quarter: 2021Q3

REPORT INFORMATION
  Report Type: Spontaneous
  Country: ES (occurrence: ES)
  Receive Date: 20210701
  Receipt Date: 20210701
  Transmission Date: 20211014
  Serious: Yes (Other)
  Sender: FDA-Public Use
  Company Number: NVSC2021ES141867

PATIENT
  Age: 86 Year
  Sex: Female
  Weight: 78.6 kg

DRUGS (1)
  1. AMOXICILLIN SODIUM,POTASSIUM CLAVULANATE [Suspect]
     Active Substance: AMOXICILLIN\CLAVULANATE POTASSIUM
     Indication: ASPIRATION
     Dosage: 1 DF, 1 TOTAL (1000/200MG)
     Route: 041
     Dates: start: 20210616, end: 20210616

REACTIONS (4)
  - Hypoxia [Recovered/Resolved]
  - Rash [Recovering/Resolving]
  - Cyanosis [Recovered/Resolved]
  - Hypotension [Recovered/Resolved]

NARRATIVE: CASE EVENT DATE: 20210616
